FAERS Safety Report 12765288 (Version 2)
Quarter: 2016Q4

REPORT INFORMATION
  Report Type: Spontaneous
  Country: US (occurrence: US)
  Receive Date: 20160921
  Receipt Date: 20161013
  Transmission Date: 20170207
  Serious: No
  Sender: FDA-Public Use
  Company Number: US-PFIZER INC-2016442347

PATIENT
  Age: 82 Year
  Sex: Female

DRUGS (3)
  1. AROMASIN [Suspect]
     Active Substance: EXEMESTANE
     Indication: NEOPLASM MALIGNANT
     Dosage: 25 MG, DAILY (PER DAY)
     Dates: start: 2015
  2. AROMASIN [Suspect]
     Active Substance: EXEMESTANE
     Dosage: UNK
  3. AFINITOR [Concomitant]
     Active Substance: EVEROLIMUS
     Dosage: UNK
     Dates: start: 2015, end: 20161001

REACTIONS (1)
  - Malaise [Unknown]
